FAERS Safety Report 18960619 (Version 3)
Quarter: 2021Q4

REPORT INFORMATION
  Report Type: Report from Study
  Country: US (occurrence: US)
  Receive Date: 20210302
  Receipt Date: 20211208
  Transmission Date: 20220303
  Serious: Yes (Other)
  Sender: FDA-Public Use
  Company Number: US-NOVARTISTESTPH-NVSC2021US048540

PATIENT
  Age: 65 Year
  Sex: Male

DRUGS (1)
  1. ENTRESTO [Suspect]
     Active Substance: SACUBITRIL\VALSARTAN
     Indication: Product used for unknown indication
     Dosage: UNK, BID (FORMULATION REPORTED AS PATCH)
     Route: 048

REACTIONS (4)
  - Diabetes mellitus [Unknown]
  - Throat clearing [Unknown]
  - Rhinorrhoea [Unknown]
  - Dyspnoea [Unknown]
